FAERS Safety Report 13182803 (Version 2)
Quarter: 2017Q1

REPORT INFORMATION
  Report Type: Spontaneous
  Country: JP (occurrence: JP)
  Receive Date: 20170203
  Receipt Date: 20170213
  Transmission Date: 20170428
  Serious: Yes (Other)
  Sender: FDA-Public Use
  Company Number: JP-009507513-1702JPN000013J

PATIENT
  Age: 9 Decade
  Sex: Male

DRUGS (2)
  1. JANUVIA [Suspect]
     Active Substance: SITAGLIPTIN PHOSPHATE
     Dosage: 50 MG, UNK
     Route: 048
  2. GLIMICRON [Concomitant]
     Active Substance: GLICLAZIDE
     Dosage: UNK
     Route: 048

REACTIONS (1)
  - Diabetic retinal oedema [Unknown]
